FAERS Safety Report 5965501-3 (Version None)
Quarter: 2008Q4

REPORT INFORMATION
  Report Type: 
  Country: None (occurrence: None)
  Receive Date: 20081125
  Receipt Date: 20081017
  Transmission Date: 20090506
  Serious: No
  Sender: FDA-Public Use
  Company Number: US-AMGEN-KDL314257

PATIENT
  Sex: Female
  Weight: 41.8 kg

DRUGS (2)
  1. ENBREL [Suspect]
     Indication: PSORIASIS
  2. RANITIDINE [Concomitant]

REACTIONS (2)
  - ALOPECIA [None]
  - DYSKINESIA [None]
